FAERS Safety Report 4712583-2 (Version None)
Quarter: 2005Q2

REPORT INFORMATION
  Report Type: 
  Country: None (occurrence: None)
  Receive Date: 20050629
  Receipt Date: 20050520
  Transmission Date: 20051028
  Serious: No
  Sender: FDA-Public Use
  Company Number: 05P-163-0301021-00

PATIENT
  Age: 51 Year
  Sex: Female
  Weight: 58.0604 kg

DRUGS (17)
  1. HUMIRA [Suspect]
     Indication: RHEUMATOID ARTHRITIS
     Dosage: 40 MG, 1 IN 2 WK, SUBCUTANEOUS
     Route: 058
     Dates: start: 20040701
  2. METHOTREXATE [Concomitant]
  3. SALSALATE [Concomitant]
  4. PARAFON FORTE [Concomitant]
  5. LAMOTRIGINE [Concomitant]
  6. ESTRADIOL [Concomitant]
  7. BUSPIRONE HCL [Concomitant]
  8. AMITRIPTYLINE HCL [Concomitant]
  9. LEXAPRO [Concomitant]
  10. OMEPRAZOLE [Concomitant]
  11. ZELNORM [Concomitant]
  12. RANITIDINE HYDROCHLORIDE [Concomitant]
  13. FOLIC ACID [Concomitant]
  14. MACROGOL [Concomitant]
  15. VALACYCLOVIR HCL [Concomitant]
  16. MELATONIN [Concomitant]
  17. CYCLOBENZAPRINE HYDROCHLORIDE [Concomitant]

REACTIONS (2)
  - HOT FLUSH [None]
  - INJECTION SITE PAIN [None]
